FAERS Safety Report 8561057-X (Version None)
Quarter: 2012Q3

REPORT INFORMATION
  Report Type: 
  Country: None (occurrence: None)
  Receive Date: 20120802
  Receipt Date: 20111214
  Transmission Date: 20120928
  Serious: No
  Sender: FDA-Public Use
  Company Number: US-BRISTOL-MYERS SQUIBB COMPANY-16293052

PATIENT
  Age: 37 Year
  Sex: Female
  Weight: 96 kg

DRUGS (12)
  1. INDERAL [Concomitant]
  2. COUMADIN [Concomitant]
  3. REYATAZ [Suspect]
  4. XANAX [Concomitant]
  5. ALBUTEROL [Concomitant]
     Route: 055
  6. ZESTORETIC [Concomitant]
  7. NORVIR [Concomitant]
  8. PROCARDIA XL [Concomitant]
  9. ZANTAC [Concomitant]
  10. FIORICET [Concomitant]
  11. DEPO-PROVERA [Concomitant]
  12. TRUVADA [Concomitant]

REACTIONS (4)
  - VOMITING [None]
  - NAUSEA [None]
  - WEIGHT DECREASED [None]
  - EPIGASTRIC DISCOMFORT [None]
